FAERS Safety Report 4570055-2 (Version None)
Quarter: 2005Q1

REPORT INFORMATION
  Report Type: 
  Country: None (occurrence: None)
  Receive Date: 20050131
  Receipt Date: 20050119
  Transmission Date: 20050727
  Serious: Yes (Disabling)
  Sender: FDA-Public Use
  Company Number: 05H-163-0287551-00

PATIENT
  Age: 50 Year
  Sex: Female
  Weight: 65 kg

DRUGS (8)
  1. NOREPINEPHRINE INJECTION (NOREPINEPHRINE BITARTRATE INJECTION) (NOREPI [Suspect]
     Indication: HYPOTENSION
     Dosage: 0.55 UG/KG/MIN
  2. DOBUTAMINE INJECTION (DOBUTAMINE HYDROCHLORIDE INJECTION) (DOBUTAMINE [Suspect]
     Dosage: 20 U/KG/MIN
  3. EPINEPHRINE [Suspect]
     Indication: HYPOTENSION
     Dosage: 3.1 UG/KG/MIN
  4. NEO-SYNEPHRINE INJECTION (NEO-SYNEPHRINE HYDROCHLORIDE) [Suspect]
     Indication: HYPOTENSION
  5. VASOPRESSIN INJECTION [Suspect]
     Indication: HYPOTENSION
     Dosage: 0.04 U/MIN
  6. RINGER'S [Concomitant]
  7. BLOOD AND RELATED PRODUCTS [Concomitant]
  8. IV FLUIDS [Concomitant]

REACTIONS (2)
  - BLINDNESS [None]
  - OPTIC ISCHAEMIC NEUROPATHY [None]
